FAERS Safety Report 23851152 (Version 1)
Quarter: 2024Q2

REPORT INFORMATION
  Report Type: Spontaneous
  Country: FR (occurrence: FR)
  Receive Date: 20240514
  Receipt Date: 20240514
  Transmission Date: 20240716
  Serious: Yes (Hospitalization, Other)
  Sender: FDA-Public Use
  Company Number: FR-AFSSAPS-PC2024000310

PATIENT
  Age: 59 Year
  Sex: Female
  Weight: 157 kg

DRUGS (7)
  1. AMOXICILLIN [Suspect]
     Active Substance: AMOXICILLIN
     Indication: Dermo-hypodermitis
     Dosage: UNK
     Route: 042
     Dates: start: 20231002, end: 20231006
  2. PANTOPRAZOLE [Suspect]
     Active Substance: PANTOPRAZOLE
     Indication: Abdominal pain upper
     Dosage: UNK
     Route: 042
     Dates: start: 20230928, end: 20230929
  3. LANSOPRAZOLE [Suspect]
     Active Substance: LANSOPRAZOLE
     Indication: Abdominal pain upper
     Dosage: UNK
     Route: 048
     Dates: start: 20231002, end: 20231009
  4. PIPERACILLIN SODIUM\TAZOBACTAM SODIUM [Suspect]
     Active Substance: PIPERACILLIN SODIUM\TAZOBACTAM SODIUM
     Indication: Dermo-hypodermitis
     Dosage: UNK
     Route: 042
     Dates: start: 20230925, end: 20230927
  5. PIPERACILLIN SODIUM\TAZOBACTAM SODIUM [Suspect]
     Active Substance: PIPERACILLIN SODIUM\TAZOBACTAM SODIUM
     Route: 042
     Dates: start: 20231006, end: 20231009
  6. AUGMENTIN [Suspect]
     Active Substance: AMOXICILLIN\CLAVULANATE POTASSIUM
     Indication: Dermo-hypodermitis
     Dosage: UNK
     Route: 042
     Dates: start: 20230927, end: 20231002
  7. CLINDAMYCIN [Suspect]
     Active Substance: CLINDAMYCIN
     Indication: Dermo-hypodermitis
     Dosage: UNK
     Route: 042
     Dates: start: 20230925, end: 20230928

REACTIONS (1)
  - Acute generalised exanthematous pustulosis [Recovered/Resolved]

NARRATIVE: CASE EVENT DATE: 20231006
